FAERS Safety Report 18504758 (Version 1)
Quarter: 2020Q4

REPORT INFORMATION
  Report Type: Spontaneous
  Country: US (occurrence: US)
  Receive Date: 20201115
  Receipt Date: 20201115
  Transmission Date: 20210114
  Serious: Yes (Other)
  Sender: FDA-Public Use
  Company Number: US-LUPIN PHARMACEUTICALS INC.-2020-08827

PATIENT
  Age: 26 Year
  Sex: Female

DRUGS (2)
  1. FIBRINOGEN [Suspect]
     Active Substance: FIBRINOGEN HUMAN
     Indication: CONGENITAL DYSFIBRINOGENAEMIA
     Dosage: 10 UNITS (CRYOPRECIPITATE)
     Route: 065
  2. BETAMETHASONE. [Suspect]
     Active Substance: BETAMETHASONE
     Indication: PRETERM PREMATURE RUPTURE OF MEMBRANES
     Dosage: UNK
     Route: 065

REACTIONS (2)
  - Premature delivery [Unknown]
  - Maternal exposure during pregnancy [Unknown]
